FAERS Safety Report 4633517-5 (Version None)
Quarter: 2005Q2

REPORT INFORMATION
  Report Type: 
  Country: None (occurrence: None)
  Receive Date: 20050331
  Receipt Date: 20041116
  Transmission Date: 20051028
  Serious: Yes (Hospitalization)
  Sender: FDA-Public Use
  Company Number: 200415554BCC

PATIENT
  Age: 77 Year
  Sex: Female
  Weight: 72.5755 kg

DRUGS (4)
  1. ALEVE (CAPLET) [Suspect]
     Indication: NECK PAIN
     Dosage: PRN, ORAL
     Route: 048
  2. ASPIRIN [Suspect]
     Indication: NECK PAIN
     Dosage: ORAL
     Route: 048
  3. CARDIZEM [Concomitant]
  4. ZIAC [Concomitant]

REACTIONS (3)
  - GASTROINTESTINAL HAEMORRHAGE [None]
  - HAEMOGLOBIN DECREASED [None]
  - RECTAL HAEMORRHAGE [None]
